FAERS Safety Report 9795620 (Version 1)
Quarter: 2014Q1

REPORT INFORMATION
  Report Type: Spontaneous
  Country: US (occurrence: US)
  Receive Date: 20140103
  Receipt Date: 20140103
  Transmission Date: 20141002
  Serious: No
  Sender: FDA-Public Use
  Company Number: US-PFIZER INC-2013371923

PATIENT
  Sex: Female

DRUGS (2)
  1. CALAN SR [Suspect]
     Indication: CLUSTER HEADACHE
     Dosage: 240 MG, UNK
  2. CALAN SR [Suspect]
     Indication: CARDIAC DISORDER

REACTIONS (1)
  - Pharyngeal disorder [Unknown]
